FAERS Safety Report 17815926 (Version 1)
Quarter: 2020Q2

REPORT INFORMATION
  Report Type: Spontaneous
  Country: US (occurrence: US)
  Receive Date: 20200521
  Receipt Date: 20200521
  Transmission Date: 20200714
  Serious: Yes (Hospitalization)
  Sender: FDA-Public Use
  Company Number: None

PATIENT
  Age: 62 Year
  Sex: Female

DRUGS (22)
  1. DICLOFENAC [Concomitant]
     Active Substance: DICLOFENAC
  2. PREDNISONE. [Concomitant]
     Active Substance: PREDNISONE
  3. ZENPEP [Concomitant]
     Active Substance: PANCRELIPASE AMYLASE\PANCRELIPASE LIPASE\PANCRELIPASE PROTEASE
  4. APAP/CODEINE [Concomitant]
     Active Substance: ACETAMINOPHEN\CODEINE PHOSPHATE
  5. ATORVASTATIN [Concomitant]
     Active Substance: ATORVASTATIN
  6. DOXYCYC MONO [Concomitant]
     Active Substance: DOXYCYCLINE
  7. DULOXETINE. [Concomitant]
     Active Substance: DULOXETINE
  8. IBUPROFEN. [Concomitant]
     Active Substance: IBUPROFEN
  9. PREGABALIN. [Concomitant]
     Active Substance: PREGABALIN
  10. SOD CHLORIDE [Concomitant]
     Active Substance: SODIUM CHLORIDE
  11. CEPHALEXIN. [Concomitant]
     Active Substance: CEPHALEXIN
  12. GABAPENTIN. [Concomitant]
     Active Substance: GABAPENTIN
  13. ONDANSETRON [Concomitant]
     Active Substance: ONDANSETRON
  14. LISINOPRIL AND HYDROCHLOROTHIAZIDE [Concomitant]
     Active Substance: HYDROCHLOROTHIAZIDE\LISINOPRIL
  15. TRAVATAN Z [Concomitant]
     Active Substance: TRAVOPROST
  16. TRAZODONE [Concomitant]
     Active Substance: TRAZODONE HYDROCHLORIDE
  17. COSENTYX [Suspect]
     Active Substance: SECUKINUMAB
     Indication: PSORIATIC ARTHROPATHY
     Dosage: ?          OTHER FREQUENCY:Q4WK;?
     Route: 058
     Dates: start: 20180404
  18. ALPRAZOLAM. [Concomitant]
     Active Substance: ALPRAZOLAM
  19. METHOCARBAM [Concomitant]
     Active Substance: METHOCARBAMOL
  20. OMEPRAZOLE. [Concomitant]
     Active Substance: OMEPRAZOLE
  21. CIPROFLOXACN [Concomitant]
     Active Substance: CIPROFLOXACIN
  22. CLINDAMYCIN. [Concomitant]
     Active Substance: CLINDAMYCIN

REACTIONS (1)
  - Surgery [None]

NARRATIVE: CASE EVENT DATE: 20200520
